FAERS Safety Report 13668571 (Version 2)
Quarter: 2017Q2

REPORT INFORMATION
  Report Type: Report from Study
  Country: CA (occurrence: CA)
  Receive Date: 20170620
  Receipt Date: 20170621
  Transmission Date: 20170830
  Serious: Yes (Other)
  Sender: FDA-Public Use
  Company Number: CA-JNJFOC-20170529510

PATIENT
  Age: 68 Year
  Sex: Male

DRUGS (1)
  1. STELARA [Suspect]
     Active Substance: USTEKINUMAB
     Indication: CROHN^S DISEASE
     Route: 058
     Dates: start: 20161106

REACTIONS (3)
  - Off label use [Unknown]
  - Product use issue [Unknown]
  - Actinic cheilitis [Not Recovered/Not Resolved]

NARRATIVE: CASE EVENT DATE: 20161106
